FAERS Safety Report 6330410-7 (Version None)
Quarter: 2009Q3

REPORT INFORMATION
  Report Type: 
  Country: None (occurrence: None)
  Receive Date: 20090826
  Receipt Date: 20090826
  Transmission Date: 20100115
  Serious: Yes (Hospitalization)
  Sender: FDA-Public Use
  Company Number: None

PATIENT
  Age: 51 Year
  Sex: Male
  Weight: 69.5 kg

DRUGS (5)
  1. RITUXIMAB [Suspect]
  2. ETOPOSIDE [Suspect]
  3. MESNA [Suspect]
  4. CYTARABINE [Suspect]
  5. METHOTREXATE SODIUM [Suspect]

REACTIONS (1)
  - FEBRILE NEUTROPENIA [None]
